FAERS Safety Report 7921364-8 (Version None)
Quarter: 2011Q4

REPORT INFORMATION
  Report Type: 
  Country: None (occurrence: None)
  Receive Date: 20111117
  Receipt Date: 20111018
  Transmission Date: 20120403
  Serious: No
  Sender: FDA-Public Use
  Company Number: IT-ROCHE-779590

PATIENT
  Sex: Female
  Weight: 57 kg

DRUGS (5)
  1. HERCEPTIN [Suspect]
     Dosage: LAST DOSE PRIOR TO SAE: 31 MARCH 2011, MAINTENANCE DOSE
     Route: 042
     Dates: start: 20101216, end: 20110519
  2. HERCEPTIN [Suspect]
     Indication: BREAST CANCER
     Dosage: LOADING DOSE
     Route: 042
  3. PERTUZUMAB [Suspect]
     Dosage: LAST DOSE PRIOR TO SAE: 13 AUGUST 2010, MAINTENANCE DOSE
     Route: 042
  4. PERTUZUMAB [Suspect]
     Indication: BREAST CANCER
     Dosage: LOADING DOSE
     Route: 042
  5. ENALAPRIL MALEATE [Concomitant]

REACTIONS (1)
  - LEFT VENTRICULAR DYSFUNCTION [None]
